FAERS Safety Report 20467164 (Version 1)
Quarter: 2022Q1

REPORT INFORMATION
  Report Type: Spontaneous
  Country: ES (occurrence: ES)
  Receive Date: 20220214
  Receipt Date: 20220214
  Transmission Date: 20220423
  Serious: Yes (Hospitalization)
  Sender: FDA-Public Use
  Company Number: None

PATIENT
  Age: 76 Year
  Sex: Female

DRUGS (3)
  1. PREDNISONE [Suspect]
     Active Substance: PREDNISONE
     Indication: Rheumatoid arthritis
     Dosage: PREDNISONA (886A); UNIT DOSE: 32.5MG
     Dates: start: 20200713, end: 20210621
  2. PREDNISONE [Suspect]
     Active Substance: PREDNISONE
     Dosage: 1.25 MILLIGRAM DAILY; 1-0-0; UNIT DOSE: 30MG
     Route: 048
     Dates: start: 20191008, end: 20200713
  3. PREDNISONE [Suspect]
     Active Substance: PREDNISONE
     Dosage: UNIT DOSE: 2.5MG
     Route: 048
     Dates: start: 20210621, end: 20220118

REACTIONS (2)
  - Hyponatraemia [Recovering/Resolving]
  - Adrenal insufficiency [Recovering/Resolving]

NARRATIVE: CASE EVENT DATE: 20220124
